FAERS Safety Report 7052522-5 (Version None)
Quarter: 2010Q4

REPORT INFORMATION
  Report Type: 
  Country: None (occurrence: None)
  Receive Date: 20101019
  Receipt Date: 20101006
  Transmission Date: 20110411
  Serious: Yes (Other)
  Sender: FDA-Public Use
  Company Number: US-ELI_LILLY_AND_COMPANY-US201010002175

PATIENT
  Age: 78 Year
  Sex: Female

DRUGS (3)
  1. CYMBALTA [Suspect]
     Indication: DIABETIC NEUROPATHY
     Dosage: 30 MG, UNK
     Dates: start: 20101001, end: 20101002
  2. ANTIHYPERTENSIVES [Concomitant]
  3. MELOXICAM [Concomitant]

REACTIONS (3)
  - HYPERSENSITIVITY [None]
  - PHARYNGEAL OEDEMA [None]
  - SWOLLEN TONGUE [None]
